FAERS Safety Report 8764539 (Version 4)
Quarter: 2014Q3

REPORT INFORMATION
  Report Type: Spontaneous
  Country: JP (occurrence: JP)
  Receive Date: 20120831
  Receipt Date: 20140815
  Transmission Date: 20150326
  Serious: Yes (Death)
  Sender: FDA-Public Use
  Company Number: JP-BAXTER-2012BAX015643

PATIENT
  Age: 74 Year
  Sex: Male

DRUGS (5)
  1. HOLOXAN FOR INJECTION 1G/25ML [Suspect]
     Active Substance: IFOSFAMIDE
     Indication: SOFT TISSUE SARCOMA
     Route: 041
     Dates: start: 20120522, end: 20120525
  2. CRAVIT [Concomitant]
     Active Substance: LEVOFLOXACIN
     Indication: INFECTION PROPHYLAXIS
     Route: 048
     Dates: start: 20120707, end: 20120712
  3. LIPITOR [Concomitant]
     Active Substance: ATORVASTATIN CALCIUM
     Indication: HYPERLIPIDAEMIA
     Route: 048
     Dates: start: 20120713
  4. HOLOXAN FOR INJECTION 1G/25ML [Suspect]
     Active Substance: IFOSFAMIDE
     Route: 041
     Dates: start: 20120619, end: 20120622
  5. HOLOXAN FOR INJECTION 1G/25ML [Suspect]
     Active Substance: IFOSFAMIDE
     Route: 041
     Dates: start: 20120717, end: 20120720

REACTIONS (1)
  - Interstitial lung disease [Fatal]

NARRATIVE: CASE EVENT DATE: 20120719
